FAERS Safety Report 4882159-5 (Version None)
Quarter: 2006Q1

REPORT INFORMATION
  Report Type: 
  Country: None (occurrence: None)
  Receive Date: 20060117
  Receipt Date: 20051213
  Transmission Date: 20060701
  Serious: Yes (Hospitalization)
  Sender: FDA-Public Use
  Company Number: US-MERCK-0512USA02130

PATIENT
  Age: 55 Year
  Sex: Female
  Weight: 57 kg

DRUGS (4)
  1. VIOXX [Suspect]
     Indication: ARTHRITIS
     Route: 048
     Dates: start: 20030904, end: 20031207
  2. PROCARDIA [Concomitant]
     Route: 065
  3. VITAMIN E [Concomitant]
     Route: 065
  4. ADVIL [Concomitant]
     Route: 065

REACTIONS (3)
  - HYPERTENSION [None]
  - MYOCARDIAL INFARCTION [None]
  - STRESS [None]
